FAERS Safety Report 25379123 (Version 1)
Quarter: 2025Q2

REPORT INFORMATION
  Report Type: Spontaneous
  Country: CA (occurrence: CA)
  Receive Date: 20250530
  Receipt Date: 20250530
  Transmission Date: 20250717
  Serious: Yes (Death, Other)
  Sender: PFIZER
  Company Number: CA-PFIZER INC-202400294872

PATIENT
  Age: 70 Year
  Sex: Male

DRUGS (13)
  1. RUXIENCE [Suspect]
     Active Substance: RITUXIMAB-PVVR
     Indication: Granulomatosis with polyangiitis
     Dosage: 787.5 MG, WEEKLY FOR 4 WEEKS (1 DF), RECEIVED AT HOSPITAL
     Route: 042
     Dates: start: 20241025
  2. RUXIENCE [Suspect]
     Active Substance: RITUXIMAB-PVVR
     Dosage: 787.5 MG, WEEKLY FOR 4 WEEKS (1 DF), FIRST TREATMENT
     Route: 042
     Dates: start: 20241104
  3. RUXIENCE [Suspect]
     Active Substance: RITUXIMAB-PVVR
     Dosage: 787.5 MG, WEEKLY FOR 4 WEEKS (1 DF), FIRST TREATMENT
     Route: 042
     Dates: start: 20241104
  4. RUXIENCE [Suspect]
     Active Substance: RITUXIMAB-PVVR
     Dosage: 787.5 MG, WEEKLY
     Route: 042
     Dates: start: 20241129, end: 20241129
  5. RUXIENCE [Suspect]
     Active Substance: RITUXIMAB-PVVR
     Dosage: 787.5 MG, WEEKLY
     Route: 042
     Dates: start: 20241129, end: 20241129
  6. RUXIENCE [Suspect]
     Active Substance: RITUXIMAB-PVVR
     Dosage: 787.5 MG, WEEKLY
     Route: 042
     Dates: start: 20241206
  7. RUXIENCE [Suspect]
     Active Substance: RITUXIMAB-PVVR
     Dosage: 787.5 MG, WEEKLY
     Route: 042
     Dates: start: 20241206
  8. ACETAMINOPHEN [Concomitant]
     Active Substance: ACETAMINOPHEN
     Indication: Premedication
     Dates: start: 20241104, end: 20241104
  9. METHYLPREDNISOLONE [Concomitant]
     Active Substance: METHYLPREDNISOLONE
     Indication: Premedication
     Dates: start: 20241104, end: 20241104
  10. DIPHENHYDRAMINE [Concomitant]
     Active Substance: DIPHENHYDRAMINE
     Indication: Premedication
     Dates: start: 20241104, end: 20241104
  11. PREDNISONE [Concomitant]
     Active Substance: PREDNISONE
  12. PREDNISOLONE [Concomitant]
     Active Substance: PREDNISOLONE
  13. INSULIN NOS [Concomitant]
     Active Substance: INSULIN NOS

REACTIONS (7)
  - Death [Fatal]
  - Hyperglycaemia [Unknown]
  - Fall [Unknown]
  - Peripheral swelling [Not Recovered/Not Resolved]
  - Hypotension [Recovering/Resolving]
  - Blood pressure diastolic decreased [Recovering/Resolving]
  - Agitation [Unknown]

NARRATIVE: CASE EVENT DATE: 20240101
